FAERS Safety Report 4790517-2 (Version None)
Quarter: 2005Q4

REPORT INFORMATION
  Report Type: 
  Country: None (occurrence: None)
  Receive Date: 20051005
  Receipt Date: 20050915
  Transmission Date: 20060501
  Serious: Yes (Other)
  Sender: FDA-Public Use
  Company Number: USA0509108276

PATIENT
  Age: 44 Year
  Sex: Female

DRUGS (3)
  1. XIGRIS [Suspect]
     Indication: SEPSIS
     Dates: start: 20050801
  2. UNSPECIFIED ANTIBIOTICS [Concomitant]
  3. UNSPECIFIED VASOPRESSOR AGENTS [Concomitant]

REACTIONS (2)
  - CONDITION AGGRAVATED [None]
  - GASTROINTESTINAL DISORDER [None]
